FAERS Safety Report 4444617-7 (Version None)
Quarter: 2004Q3

REPORT INFORMATION
  Report Type: 
  Country: None (occurrence: None)
  Receive Date: 20040907
  Receipt Date: 20040823
  Transmission Date: 20050211
  Serious: Yes (Hospitalization)
  Sender: FDA-Public Use
  Company Number: TNZFR200400100

PATIENT
  Age: 58 Year
  Sex: Male
  Weight: 110 kg

DRUGS (9)
  1. INNOHEP [Suspect]
     Dosage: SUBCUTANEOUS
     Route: 058
     Dates: start: 20040714, end: 20040726
  2. METOPROLOL TARTRATE [Suspect]
     Dosage: SEE IMAGE
     Route: 048
     Dates: end: 20040726
  3. METOPROLOL TARTRATE [Suspect]
     Dosage: SEE IMAGE
     Route: 048
     Dates: start: 20040730
  4. NIFEDIPINE [Suspect]
     Dosage: TWICE DAILY, ORAL
     Route: 048
     Dates: end: 20040726
  5. METFORMIN HCL [Suspect]
     Dosage: TWICE DAILY, ORAL
     Route: 048
     Dates: end: 20040726
  6. ALDALIX (OSYROL-LASIX) CAPSULES [Suspect]
     Dosage: 2 (2, ONCE DAILY), ORAL
     Route: 048
     Dates: end: 20040726
  7. PYOSTACINE (PRISTINAMYCIN) [Concomitant]
  8. OFLOXACIN [Concomitant]
  9. CEFUROXIME AXETIL [Concomitant]

REACTIONS (8)
  - DIALYSIS [None]
  - FORMICATION [None]
  - HYPERKALAEMIA [None]
  - MUSCULAR WEAKNESS [None]
  - NUCHAL RIGIDITY [None]
  - PAIN IN EXTREMITY [None]
  - RENAL FAILURE [None]
  - URTICARIA [None]
